FAERS Safety Report 24106485 (Version 1)
Quarter: 2024Q3

REPORT INFORMATION
  Report Type: Spontaneous
  Country: RU (occurrence: RU)
  Receive Date: 20240717
  Receipt Date: 20240717
  Transmission Date: 20241017
  Serious: Yes (Other)
  Sender: NOVARTIS
  Company Number: RU-002147023-NVSC2024RU112097

PATIENT
  Age: 6 Month

DRUGS (2)
  1. CYCLOSPORINE [Suspect]
     Active Substance: CYCLOSPORINE
     Indication: Juvenile idiopathic arthritis
     Dosage: 5 MG/KG, BID
     Route: 048
  2. METHYLPREDNISOLONE [Suspect]
     Active Substance: METHYLPREDNISOLONE
     Indication: Juvenile idiopathic arthritis
     Dosage: UNK
     Route: 048

REACTIONS (2)
  - Juvenile idiopathic arthritis [Unknown]
  - Product use issue [Unknown]
